FAERS Safety Report 21391098 (Version 1)
Quarter: 2022Q3

REPORT INFORMATION
  Report Type: Spontaneous
  Country: US (occurrence: None)
  Receive Date: 20220927
  Receipt Date: 20220927
  Transmission Date: 20221026
  Serious: Yes (Other)
  Sender: FDA-Public Use
  Company Number: None

PATIENT
  Age: 51 Year
  Sex: Female
  Weight: 65.25 kg

DRUGS (7)
  1. DUPIXENT [Suspect]
     Active Substance: DUPILUMAB
     Indication: Dyshidrotic eczema
     Dosage: OTHER QUANTITY : 2 INJECTION(S);?OTHER FREQUENCY : 1 TIME;?
     Route: 058
     Dates: start: 20220328, end: 20220922
  2. Northindrone [Concomitant]
  3. IRON [Concomitant]
     Active Substance: IRON
  4. VITAMIN D [Concomitant]
     Active Substance: VITAMIN D NOS
  5. ALEVE [Concomitant]
     Active Substance: NAPROXEN SODIUM
  6. TYLENOL [Concomitant]
     Active Substance: ACETAMINOPHEN
  7. Excedrine [Concomitant]

REACTIONS (9)
  - Alopecia [None]
  - Alopecia [None]
  - Trichorrhexis [None]
  - Hair texture abnormal [None]
  - Throat clearing [None]
  - Rhinorrhoea [None]
  - Upper-airway cough syndrome [None]
  - Vision blurred [None]
  - Anxiety [None]

NARRATIVE: CASE EVENT DATE: 20220328
